FAERS Safety Report 21889452 (Version 1)
Quarter: 2023Q1

REPORT INFORMATION
  Report Type: Spontaneous
  Country: HR (occurrence: HR)
  Receive Date: 20230120
  Receipt Date: 20230120
  Transmission Date: 20230418
  Serious: Yes (Life-Threatening, Other)
  Sender: FDA-Public Use
  Company Number: None

PATIENT
  Age: 8 Month
  Sex: Female
  Weight: 8.2 kg

DRUGS (1)
  1. ALBUTEROL [Suspect]
     Active Substance: ALBUTEROL
     Indication: Bronchitis
     Dosage: 8 DROPS IN 3 ML OF NACL FOR THE FIRST WEEK, 2 TIMES A DAY, AND THEN ONCE EVERY 4 DAYS
     Route: 065
     Dates: start: 20221217

REACTIONS (5)
  - Fear [Recovering/Resolving]
  - Irritability [Recovering/Resolving]
  - Hiccups [Recovering/Resolving]
  - Arrhythmia [Recovering/Resolving]
  - Initial insomnia [Recovering/Resolving]

NARRATIVE: CASE EVENT DATE: 20221226
